FAERS Safety Report 5827287-2 (Version None)
Quarter: 2008Q3

REPORT INFORMATION
  Report Type: 
  Country: None (occurrence: None)
  Receive Date: 20080724
  Receipt Date: 20080716
  Transmission Date: 20090109
  Serious: Yes (Hospitalization)
  Sender: FDA-Public Use
  Company Number: LTI2008A00217

PATIENT
  Age: 71 Year
  Sex: Female

DRUGS (8)
  1. ACTOS [Suspect]
     Indication: TYPE 2 DIABETES MELLITUS
     Dosage: 15 MG (15 MG, 1 - 2) ORAL; 30 MG (15 MG, 1 IN 1 D) ORAL
     Route: 048
     Dates: start: 20070901, end: 20080101
  2. ACTOS [Suspect]
     Indication: TYPE 2 DIABETES MELLITUS
     Dosage: 15 MG (15 MG, 1 - 2) ORAL; 30 MG (15 MG, 1 IN 1 D) ORAL
     Route: 048
     Dates: start: 20080101, end: 20080523
  3. ALDALIX (SPIRONOLACTONE, FUROSEMIDE) [Suspect]
     Dosage: ORAL
     Route: 048
     Dates: end: 20080520
  4. KEPPRA [Concomitant]
  5. TENORMIN [Concomitant]
  6. COZAAR [Concomitant]
  7. STAGID (METFORMIN EMBONATE) [Concomitant]
  8. LEVOTHYROXINE SODIUM [Concomitant]

REACTIONS (20)
  - CEREBRAL ARTERIOSCLEROSIS [None]
  - CEREBRAL ISCHAEMIA [None]
  - COGNITIVE DISORDER [None]
  - CONFUSIONAL STATE [None]
  - DEMYELINATION [None]
  - DEPRESSED LEVEL OF CONSCIOUSNESS [None]
  - DISORIENTATION [None]
  - DISTURBANCE IN ATTENTION [None]
  - DYSARTHRIA [None]
  - HYPONATRAEMIA [None]
  - HYPOTENSION [None]
  - INTRACRANIAL PRESSURE INCREASED [None]
  - LEUKOARAIOSIS [None]
  - LEUKOENCEPHALOPATHY [None]
  - MEMORY IMPAIRMENT [None]
  - MIGRAINE [None]
  - PAPILLOEDEMA [None]
  - PETIT MAL EPILEPSY [None]
  - RENAL DISORDER [None]
  - SPEECH DISORDER [None]
